FAERS Safety Report 14580750 (Version 4)
Quarter: 2019Q1

REPORT INFORMATION
  Report Type: Spontaneous
  Country: US (occurrence: US)
  Receive Date: 20180228
  Receipt Date: 20190111
  Transmission Date: 20190417
  Serious: Yes (Other)
  Sender: FDA-Public Use
  Company Number: US-ASTRAZENECA-2018SE23280

PATIENT
  Age: 24082 Day
  Sex: Female
  Weight: 97.1 kg

DRUGS (72)
  1. NEXIUM [Suspect]
     Active Substance: ESOMEPRAZOLE MAGNESIUM
     Indication: GASTROOESOPHAGEAL REFLUX DISEASE
     Route: 048
     Dates: start: 20071222
  2. NEXIUM [Suspect]
     Active Substance: ESOMEPRAZOLE MAGNESIUM
     Indication: GASTROOESOPHAGEAL REFLUX DISEASE
     Route: 048
     Dates: start: 20091106
  3. OMEPRAZOLE. [Suspect]
     Active Substance: OMEPRAZOLE
     Indication: GASTROOESOPHAGEAL REFLUX DISEASE
     Dosage: GENERIC, 40 MG
     Route: 065
     Dates: start: 2017
  4. NIFEDIAC CC [Concomitant]
     Active Substance: NIFEDIPINE
     Indication: BLOOD PRESSURE MEASUREMENT
     Route: 048
     Dates: start: 20160127
  5. NIFEDIAC CC [Concomitant]
     Active Substance: NIFEDIPINE
     Indication: BLOOD PRESSURE MEASUREMENT
     Dosage: 60 MG
     Route: 065
     Dates: start: 20040701
  6. METFORMIN [Concomitant]
     Active Substance: METFORMIN HYDROCHLORIDE
     Indication: BLOOD GLUCOSE ABNORMAL
     Route: 048
     Dates: start: 20110516
  7. ATENOLOL. [Concomitant]
     Active Substance: ATENOLOL
     Indication: CARDIAC DISORDER
     Route: 065
     Dates: start: 2004, end: 2016
  8. NEURONTIN [Concomitant]
     Active Substance: GABAPENTIN
     Indication: MUSCULOSKELETAL DISORDER
     Route: 065
     Dates: start: 2015, end: 2018
  9. NORVASC [Concomitant]
     Active Substance: AMLODIPINE BESYLATE
     Indication: BLOOD PRESSURE MEASUREMENT
     Route: 048
     Dates: start: 201712
  10. TRAMADOL HYDROCHLORIDE. [Concomitant]
     Active Substance: TRAMADOL HYDROCHLORIDE
     Indication: MUSCULOSKELETAL DISORDER
     Route: 065
     Dates: start: 2014
  11. TRAMADOL HYDROCHLORIDE. [Concomitant]
     Active Substance: TRAMADOL HYDROCHLORIDE
     Indication: MUSCULOSKELETAL DISORDER
     Route: 048
     Dates: start: 20160523
  12. GARLIC. [Concomitant]
     Active Substance: GARLIC
     Indication: HYPERTENSION
     Dosage: 500 MG AS DIRECTED
     Route: 048
     Dates: start: 20160523
  13. BAYER ASPIRIN [Concomitant]
     Active Substance: ASPIRIN
     Indication: CARDIAC DISORDER
     Route: 048
     Dates: start: 20160523
  14. MAGNESIUM OXIDE. [Concomitant]
     Active Substance: MAGNESIUM OXIDE
     Route: 048
     Dates: start: 20160523
  15. VALACICLOVIR [Concomitant]
     Active Substance: VALACYCLOVIR HYDROCHLORIDE
  16. OMEPRAZOLE. [Suspect]
     Active Substance: OMEPRAZOLE
     Indication: GASTROOESOPHAGEAL REFLUX DISEASE
     Dosage: GENERIC
     Route: 048
     Dates: start: 20170705
  17. PROTONIX [Suspect]
     Active Substance: PANTOPRAZOLE SODIUM
     Indication: GASTROOESOPHAGEAL REFLUX DISEASE
     Dosage: 40 MG
     Route: 065
     Dates: start: 20061229
  18. PROTONIX [Suspect]
     Active Substance: PANTOPRAZOLE SODIUM
     Indication: GASTROOESOPHAGEAL REFLUX DISEASE
     Route: 048
     Dates: start: 20061213
  19. PROTONIX [Suspect]
     Active Substance: PANTOPRAZOLE SODIUM
     Indication: GASTROOESOPHAGEAL REFLUX DISEASE
     Route: 048
     Dates: start: 20070705
  20. ATENOLOL. [Concomitant]
     Active Substance: ATENOLOL
     Indication: CARDIAC DISORDER
     Dosage: 50.0MG AS REQUIRED
     Route: 048
     Dates: start: 20160523
  21. MICARDIS HCT [Concomitant]
     Active Substance: HYDROCHLOROTHIAZIDE\TELMISARTAN
     Indication: BLOOD PRESSURE MEASUREMENT
     Dosage: 40-12.5 MG 2 TABLET ORALLY ONCE A DAY,30 DAYS
     Route: 048
     Dates: start: 2008
  22. CENTRUM SILVER [Concomitant]
     Active Substance: MINERALS\VITAMINS
     Indication: HYPOVITAMINOSIS
     Route: 065
     Dates: start: 2002
  23. METHYLPREDNISOLONE. [Concomitant]
     Active Substance: METHYLPREDNISOLONE
     Dosage: 4 MG
     Route: 065
     Dates: start: 20100905
  24. METRONIDAZOLE. [Concomitant]
     Active Substance: METRONIDAZOLE
     Route: 048
     Dates: start: 20170502
  25. AMOXICILLIN. [Concomitant]
     Active Substance: AMOXICILLIN
     Dosage: 500.0MG EVERY 8 - 12 HOURS
     Route: 048
     Dates: start: 20171005
  26. METFORMIN [Concomitant]
     Active Substance: METFORMIN HYDROCHLORIDE
     Indication: BLOOD GLUCOSE ABNORMAL
     Route: 048
     Dates: start: 2004, end: 201712
  27. ATENOLOL. [Concomitant]
     Active Substance: ATENOLOL
     Indication: CARDIAC DISORDER
     Route: 048
     Dates: start: 20110516
  28. FLAXSEED [Concomitant]
     Active Substance: FLAX SEED
     Route: 065
     Dates: start: 2012
  29. DOCUSATE SODIUM. [Concomitant]
     Active Substance: DOCUSATE SODIUM
     Route: 048
     Dates: start: 20171022
  30. NEURONTIN [Concomitant]
     Active Substance: GABAPENTIN
     Indication: MUSCULOSKELETAL DISORDER
     Dosage: 400 MG
     Route: 065
     Dates: start: 20040830
  31. ZOCOR [Concomitant]
     Active Substance: SIMVASTATIN
     Indication: BLOOD CHOLESTEROL
     Route: 048
     Dates: start: 20160523
  32. TRULICITY [Concomitant]
     Active Substance: DULAGLUTIDE
     Indication: BLOOD GLUCOSE ABNORMAL
     Route: 065
     Dates: start: 201712
  33. FISH OIL [Concomitant]
     Active Substance: FISH OIL
     Indication: BLOOD CHOLESTEROL
     Route: 065
     Dates: start: 2008
  34. BAYER ASPIRIN [Concomitant]
     Active Substance: ASPIRIN
     Indication: CARDIAC DISORDER
     Dates: start: 2013
  35. METFORMIN [Concomitant]
     Active Substance: METFORMIN HYDROCHLORIDE
     Indication: BLOOD GLUCOSE ABNORMAL
     Dosage: 500 MG
     Route: 048
     Dates: start: 20040830
  36. EPIPEN [Concomitant]
     Active Substance: EPINEPHRINE
     Indication: HYPERSENSITIVITY
     Dosage: 0.3 MG/0.3ML (1:1000)
     Route: 030
     Dates: start: 20160523
  37. NORVASC [Concomitant]
     Active Substance: AMLODIPINE BESYLATE
     Indication: BLOOD PRESSURE MEASUREMENT
     Route: 048
     Dates: start: 20160523
  38. VITAMIN D [Concomitant]
     Active Substance: CHOLECALCIFEROL
     Indication: VITAMIN D DEFICIENCY
     Route: 065
     Dates: start: 2017
  39. ZINC. [Concomitant]
     Active Substance: ZINC
     Dates: start: 2006
  40. ZINC. [Concomitant]
     Active Substance: ZINC
     Route: 065
     Dates: start: 2013
  41. PEPTO-BISMOL [Concomitant]
     Active Substance: BISMUTH SUBSALICYLATE
     Dosage: AS NEEDED
     Route: 065
     Dates: start: 2006
  42. NEXIUM [Suspect]
     Active Substance: ESOMEPRAZOLE MAGNESIUM
     Indication: GASTROOESOPHAGEAL REFLUX DISEASE
     Dosage: 40 MG
     Route: 048
     Dates: start: 2004, end: 2017
  43. GLIPIZIDE. [Concomitant]
     Active Substance: GLIPIZIDE
     Indication: BLOOD GLUCOSE ABNORMAL
     Route: 065
     Dates: start: 2004, end: 2016
  44. GLIPIZIDE. [Concomitant]
     Active Substance: GLIPIZIDE
     Indication: BLOOD GLUCOSE ABNORMAL
     Route: 048
     Dates: start: 20110516
  45. MELOXICAM. [Concomitant]
     Active Substance: MELOXICAM
     Route: 048
     Dates: start: 2009
  46. NEURONTIN [Concomitant]
     Active Substance: GABAPENTIN
     Indication: MUSCULOSKELETAL DISORDER
     Route: 065
     Dates: start: 2009, end: 2018
  47. ZOCOR [Concomitant]
     Active Substance: SIMVASTATIN
     Indication: BLOOD CHOLESTEROL
     Dosage: 20 MG
     Route: 065
     Dates: start: 20040616
  48. EPIPEN [Concomitant]
     Active Substance: EPINEPHRINE
     Indication: HYPERSENSITIVITY
     Route: 065
     Dates: start: 2010
  49. FISH OIL [Concomitant]
     Active Substance: FISH OIL
     Indication: BLOOD CHOLESTEROL
     Route: 048
     Dates: start: 20160523
  50. PENICILLIN [Concomitant]
     Active Substance: PENICILLIN
  51. TERCONAZOLE. [Concomitant]
     Active Substance: TERCONAZOLE
  52. TOPROL XL [Concomitant]
     Active Substance: METOPROLOL SUCCINATE
  53. NEXIUM [Suspect]
     Active Substance: ESOMEPRAZOLE MAGNESIUM
     Indication: GASTROOESOPHAGEAL REFLUX DISEASE
     Dosage: 40.0MG UNKNOWN
     Route: 048
     Dates: start: 20170102
  54. OMEPRAZOLE. [Suspect]
     Active Substance: OMEPRAZOLE
     Indication: GASTROOESOPHAGEAL REFLUX DISEASE
     Dosage: GENERIC
     Route: 048
     Dates: start: 20171127
  55. PROTONIX [Suspect]
     Active Substance: PANTOPRAZOLE SODIUM
     Indication: GASTROOESOPHAGEAL REFLUX DISEASE
     Dosage: 40 MG
     Route: 065
     Dates: start: 20170401, end: 20170910
  56. GLIPIZIDE. [Concomitant]
     Active Substance: GLIPIZIDE
     Indication: BLOOD GLUCOSE ABNORMAL
     Dosage: 5 MG
     Route: 048
     Dates: start: 20040615
  57. RANITIDINE. [Concomitant]
     Active Substance: RANITIDINE
     Route: 048
     Dates: start: 20100905
  58. ZOCOR [Concomitant]
     Active Substance: SIMVASTATIN
     Indication: BLOOD CHOLESTEROL
     Route: 065
     Dates: start: 2004, end: 2006
  59. IRON [Concomitant]
     Active Substance: IRON
     Indication: IRON DEFICIENCY ANAEMIA
     Route: 065
     Dates: start: 2013, end: 2016
  60. JANUVIA [Concomitant]
     Active Substance: SITAGLIPTIN PHOSPHATE
     Indication: BLOOD GLUCOSE ABNORMAL
     Route: 065
     Dates: start: 201712
  61. GARLIC. [Concomitant]
     Active Substance: GARLIC
     Indication: HYPERTENSION
     Route: 065
     Dates: start: 1998
  62. DIPHENHYDRAMINE HYDROCHLORIDE. [Concomitant]
     Active Substance: DIPHENHYDRAMINE HYDROCHLORIDE
     Indication: ALLERGY TO ARTHROPOD BITE
     Route: 065
     Dates: start: 2008
  63. NAPROXEN. [Concomitant]
     Active Substance: NAPROXEN
  64. ESTRADIOL. [Concomitant]
     Active Substance: ESTRADIOL
  65. NEXIUM [Suspect]
     Active Substance: ESOMEPRAZOLE MAGNESIUM
     Indication: GASTROOESOPHAGEAL REFLUX DISEASE
     Route: 048
     Dates: start: 20040615, end: 20171127
  66. NEXIUM [Suspect]
     Active Substance: ESOMEPRAZOLE MAGNESIUM
     Indication: GASTROOESOPHAGEAL REFLUX DISEASE
     Route: 048
     Dates: start: 20160523
  67. METANX [Concomitant]
     Active Substance: LEVOMEFOLATE CALCIUM\METHYLCOBALAMIN\PYRIDOXAL PHOSPHATE ANHYDROUS
     Dosage: TWO TIMES A DAY
     Route: 048
     Dates: start: 20150303
  68. NIFEDIAC CC [Concomitant]
     Active Substance: NIFEDIPINE
     Indication: BLOOD PRESSURE MEASUREMENT
     Dates: start: 2007, end: 2012
  69. ATENOLOL. [Concomitant]
     Active Substance: ATENOLOL
     Indication: CARDIAC DISORDER
     Dosage: 25 MG AS REQUIRED
     Route: 065
     Dates: start: 20040701
  70. FLAXSEED [Concomitant]
     Active Substance: FLAX SEED
     Dosage: 1000 MG AS DIRECTED ORALLY
     Route: 048
     Dates: start: 20160523
  71. OXYBUTYNIN CHLORIDE. [Concomitant]
     Active Substance: OXYBUTYNIN CHLORIDE
  72. FLUTICASONE PROPIONATE. [Concomitant]
     Active Substance: FLUTICASONE PROPIONATE

REACTIONS (4)
  - Chronic kidney disease [Not Recovered/Not Resolved]
  - Renal failure [Unknown]
  - Hyperparathyroidism secondary [Unknown]
  - Nephrogenic anaemia [Unknown]

NARRATIVE: CASE EVENT DATE: 20171006
